FAERS Safety Report 16745907 (Version 1)
Quarter: 2019Q4

REPORT INFORMATION
  Report Type: Spontaneous
  Country: US (occurrence: US)
  Receive Date: 20190827
  Receipt Date: 20190827
  Transmission Date: 20200122
  Serious: Yes (Disabling)
  Sender: FDA-Public Use
  Company Number: None

PATIENT
  Age: 39 Year
  Sex: Female
  Weight: 67.5 kg

DRUGS (1)
  1. EMGALITY [Suspect]
     Active Substance: GALCANEZUMAB-GNLM
     Indication: MIGRAINE
     Dosage: ?          QUANTITY:1 INJECTION(S);OTHER FREQUENCY:ONCE  A MONTH;?
     Route: 058
     Dates: start: 20190727

REACTIONS (8)
  - Abdominal distension [None]
  - Initial insomnia [None]
  - Gastric disorder [None]
  - Abdominal pain upper [None]
  - Sleep disorder [None]
  - Gastrooesophageal reflux disease [None]
  - Insomnia [None]
  - Constipation [None]

NARRATIVE: CASE EVENT DATE: 20190803
